FAERS Safety Report 21179288 (Version 1)
Quarter: 2022Q3

REPORT INFORMATION
  Report Type: Report from Study
  Country: US (occurrence: US)
  Receive Date: 20220805
  Receipt Date: 20220805
  Transmission Date: 20221027
  Serious: Yes (Hospitalization, Other)
  Sender: FDA-Public Use
  Company Number: US-JAZZ-2022-US-022762

PATIENT
  Age: 68 Year
  Sex: Male

DRUGS (13)
  1. XYWAV [Suspect]
     Active Substance: CALCIUM OXYBATE\MAGNESIUM OXYBATE\POTASSIUM OXYBATE\SODIUM OXYBATE
     Indication: Hypersomnia
     Dosage: UNK
  2. METFORMIN [Concomitant]
     Active Substance: METFORMIN HYDROCHLORIDE
     Indication: Diabetes mellitus
  3. LEVOCETIRIZINE [Concomitant]
     Active Substance: LEVOCETIRIZINE
     Indication: Product used for unknown indication
     Dosage: 0000
     Dates: start: 20130601
  4. FLUTICASONE PROPIONATE [Concomitant]
     Active Substance: FLUTICASONE PROPIONATE
     Indication: Product used for unknown indication
     Dosage: 0000
     Dates: start: 20130601
  5. PROAIR HFA [Concomitant]
     Active Substance: ALBUTEROL SULFATE
     Indication: Product used for unknown indication
     Dosage: 0000
     Dates: start: 20150201
  6. ALCOHOL [Concomitant]
     Active Substance: ALCOHOL
     Indication: Product used for unknown indication
     Dosage: 0000
     Dates: start: 19741201
  7. NITROSTAT [Concomitant]
     Active Substance: NITROGLYCERIN
     Indication: Product used for unknown indication
     Dosage: 0000
     Dates: start: 20170214
  8. SYMBICORT [Concomitant]
     Active Substance: BUDESONIDE\FORMOTEROL FUMARATE DIHYDRATE
     Indication: Product used for unknown indication
     Dosage: 0000
     Dates: start: 20170404
  9. ACYCLOVIR [Concomitant]
     Active Substance: ACYCLOVIR
     Indication: Product used for unknown indication
     Dosage: 0000
     Dates: start: 20171211
  10. SINGULAIR [Concomitant]
     Active Substance: MONTELUKAST SODIUM
     Indication: Product used for unknown indication
     Dosage: 0000
     Dates: start: 20180507
  11. PEPCID [Concomitant]
     Active Substance: FAMOTIDINE
     Indication: Product used for unknown indication
     Dosage: 0000
     Dates: start: 20200318
  12. ASPIRIN [Concomitant]
     Active Substance: ASPIRIN
     Indication: Product used for unknown indication
     Dosage: 0000
     Dates: start: 20211214
  13. CARVEDILOL [Concomitant]
     Active Substance: CARVEDILOL
     Indication: Product used for unknown indication
     Dosage: 0000
     Dates: start: 20220608

REACTIONS (7)
  - Spinal fracture [Unknown]
  - Fall [Unknown]
  - Blood glucose decreased [Unknown]
  - Blood pressure decreased [Unknown]
  - Dental implantation [Unknown]
  - Infection [Unknown]
  - Confusional state [Unknown]

NARRATIVE: CASE EVENT DATE: 20211001
